FAERS Safety Report 11599731 (Version 1)
Quarter: 2015Q3

REPORT INFORMATION
  Report Type: Spontaneous
  Country: US (occurrence: US)
  Receive Date: 20150916
  Receipt Date: 20150916
  Transmission Date: 20151125
  Serious: No
  Sender: FDA-Public Use
  Company Number: US-ELI_LILLY_AND_COMPANY-US200706006410

PATIENT
  Age: 79 Year
  Sex: Female

DRUGS (2)
  1. PRILOSEC [Concomitant]
     Active Substance: OMEPRAZOLE MAGNESIUM
  2. FORTEO [Suspect]
     Active Substance: TERIPARATIDE
     Indication: OSTEOPOROSIS
     Dates: start: 20070620

REACTIONS (6)
  - Diarrhoea [Not Recovered/Not Resolved]
  - Accidental overdose [Recovering/Resolving]
  - Tremor [Recovering/Resolving]
  - Flatulence [Not Recovered/Not Resolved]
  - Viral infection [Not Recovered/Not Resolved]
  - Medication error [Recovering/Resolving]

NARRATIVE: CASE EVENT DATE: 200706
